FAERS Safety Report 25041694 (Version 1)
Quarter: 2025Q1

REPORT INFORMATION
  Report Type: Spontaneous
  Country: US (occurrence: US)
  Receive Date: 20250305
  Receipt Date: 20250305
  Transmission Date: 20250408
  Serious: Yes (Death, Other)
  Sender: MYLAN
  Company Number: US-MYLANLABS-2025M1017668

PATIENT
  Age: 40 Year
  Sex: Male

DRUGS (3)
  1. FENTANYL [Suspect]
     Active Substance: FENTANYL
     Indication: Product used for unknown indication
  2. METHAMPHETAMINE [Suspect]
     Active Substance: METHAMPHETAMINE
     Indication: Product used for unknown indication
  3. OXYCODONE [Suspect]
     Active Substance: OXYCODONE
     Indication: Product used for unknown indication

REACTIONS (8)
  - Toxicity to various agents [Fatal]
  - Headache [Fatal]
  - Musculoskeletal chest pain [Fatal]
  - Meningitis [Fatal]
  - Sepsis [Fatal]
  - Brain oedema [Fatal]
  - Hypoxic-ischaemic encephalopathy [Fatal]
  - Cerebral venous sinus thrombosis [Fatal]
